FAERS Safety Report 5628389-6 (Version None)
Quarter: 2008Q1

REPORT INFORMATION
  Report Type: 
  Country: None (occurrence: None)
  Receive Date: 20080215
  Receipt Date: 20080204
  Transmission Date: 20080703
  Serious: Yes (Other)
  Sender: FDA-Public Use
  Company Number: US-PFIZER INC-2007102436

PATIENT
  Sex: Male
  Weight: 95.3 kg

DRUGS (5)
  1. DILANTIN [Suspect]
     Indication: GRAND MAL CONVULSION
     Dosage: DAILY DOSE:300MG
  2. ASPIRIN [Interacting]
     Indication: ANTICOAGULANT THERAPY
  3. MAXZIDE [Concomitant]
  4. STOOL SOFTENER [Concomitant]
  5. VITAMIN B-12 [Concomitant]

REACTIONS (6)
  - CONVULSION [None]
  - DRUG INTERACTION [None]
  - INTENTIONAL DRUG MISUSE [None]
  - PROSTATE CANCER [None]
  - PULMONARY EMBOLISM [None]
  - SURGERY [None]
